FAERS Safety Report 20544078 (Version 1)
Quarter: 2022Q1

REPORT INFORMATION
  Report Type: Spontaneous
  Country: US (occurrence: US)
  Receive Date: 20220303
  Receipt Date: 20220303
  Transmission Date: 20220423
  Serious: Yes (Hospitalization, Other)
  Sender: FDA-Public Use
  Company Number: US-AMGEN-USASP2022034790

PATIENT
  Sex: Female

DRUGS (3)
  1. LUMAKRAS [Suspect]
     Active Substance: SOTORASIB
     Indication: Product used for unknown indication
     Dosage: UNK
     Route: 065
  2. LUMAKRAS [Suspect]
     Active Substance: SOTORASIB
     Dosage: 4 PILLS
     Route: 065
  3. LUMAKRAS [Suspect]
     Active Substance: SOTORASIB
     Dosage: ONE PILL
     Route: 065
     Dates: start: 20220224

REACTIONS (8)
  - Hepatic enzyme abnormal [Recovering/Resolving]
  - Colitis [Unknown]
  - Blood magnesium decreased [Unknown]
  - Blood potassium decreased [Unknown]
  - Weight decreased [Unknown]
  - General physical health deterioration [Unknown]
  - Vomiting [Not Recovered/Not Resolved]
  - Diarrhoea [Not Recovered/Not Resolved]
